FAERS Safety Report 4832534-X (Version None)
Quarter: 2005Q4

REPORT INFORMATION
  Report Type: 
  Country: None (occurrence: None)
  Receive Date: 20051117
  Receipt Date: 20051107
  Transmission Date: 20060501
  Serious: Yes (Hospitalization)
  Sender: FDA-Public Use
  Company Number: 2005PV003338

PATIENT
  Age: 68 Year
  Sex: Female
  Weight: 90.7194 kg

DRUGS (5)
  1. BYETTA [Suspect]
     Indication: DIABETES MELLITUS NON-INSULIN-DEPENDENT
     Dosage: 5 MCG; BID; SC ; 10 MCG; BID; SC
     Route: 058
     Dates: start: 20050801, end: 20051016
  2. BYETTA [Suspect]
     Indication: DIABETES MELLITUS NON-INSULIN-DEPENDENT
     Dosage: 5 MCG; BID; SC ; 10 MCG; BID; SC
     Route: 058
     Dates: start: 20051017, end: 20051103
  3. LANTUS [Concomitant]
  4. AMARYL [Concomitant]
  5. SYNTHROID [Concomitant]

REACTIONS (12)
  - ABDOMINAL PAIN UPPER [None]
  - ASTHENIA [None]
  - BLOOD GLUCOSE INCREASED [None]
  - DECREASED APPETITE [None]
  - DEHYDRATION [None]
  - DIARRHOEA [None]
  - DIZZINESS [None]
  - FALL [None]
  - MEDICAL DEVICE COMPLICATION [None]
  - PHARMACEUTICAL PRODUCT COMPLAINT [None]
  - STRESS [None]
  - WEIGHT DECREASED [None]
